FAERS Safety Report 17703610 (Version 1)
Quarter: 2020Q2

REPORT INFORMATION
  Report Type: Spontaneous
  Country: US (occurrence: US)
  Receive Date: 20200423
  Receipt Date: 20200423
  Transmission Date: 20200714
  Serious: No
  Sender: FDA-Public Use
  Company Number: None

PATIENT
  Age: 62 Year
  Sex: Male

DRUGS (2)
  1. MERCAOTOPURINE TAB 50MG [Suspect]
     Active Substance: MERCAPTOPURINE
     Indication: ACUTE PROMYELOCYTIC LEUKAEMIA
     Route: 048
     Dates: start: 20200423
  2. TRETINOIN. [Concomitant]
     Active Substance: TRETINOIN

REACTIONS (2)
  - Acute promyelocytic leukaemia [None]
  - Off label use [None]

NARRATIVE: CASE EVENT DATE: 20200423
